FAERS Safety Report 5730578-7 (Version None)
Quarter: 2008Q2

REPORT INFORMATION
  Report Type: 
  Country: None (occurrence: None)
  Receive Date: 20080507
  Receipt Date: 20080502
  Transmission Date: 20081010
  Serious: Yes (Hospitalization)
  Sender: FDA-Public Use
  Company Number: A0726093A

PATIENT
  Age: 51 Year
  Sex: Female

DRUGS (2)
  1. AVODART [Suspect]
     Indication: DRUG DISPENSING ERROR
     Dosage: .5MG PER DAY
     Route: 048
  2. ALTOPREV [Suspect]
     Indication: DRUG USE FOR UNKNOWN INDICATION
     Route: 065

REACTIONS (4)
  - BREAST INDURATION [None]
  - BREAST PAIN [None]
  - DRUG DISPENSING ERROR [None]
  - PAIN IN EXTREMITY [None]
